FAERS Safety Report 5404242-8 (Version None)
Quarter: 2007Q3

REPORT INFORMATION
  Report Type: 
  Country: None (occurrence: None)
  Receive Date: 20070802
  Receipt Date: 20070725
  Transmission Date: 20080115
  Serious: Yes (Death, Other)
  Sender: FDA-Public Use
  Company Number: JP-ROCHE-509163

PATIENT
  Age: 22 Year
  Sex: Male

DRUGS (4)
  1. CELLCEPT [Suspect]
     Route: 048
  2. HORMONE [Concomitant]
     Dosage: REPORTED AS ADRENAL HORMONE PREPARATION
  3. PROGRAF [Concomitant]
  4. SIMULECT [Concomitant]
     Route: 041

REACTIONS (5)
  - EPSTEIN-BARR VIRUS INFECTION [None]
  - GASTROINTESTINAL HAEMORRHAGE [None]
  - HISTIOCYTOSIS HAEMATOPHAGIC [None]
  - SEPSIS [None]
  - SMALL INTESTINE ULCER [None]
